FAERS Safety Report 12653553 (Version 1)
Quarter: 2016Q3

REPORT INFORMATION
  Report Type: Spontaneous
  Country: US (occurrence: US)
  Receive Date: 20160815
  Receipt Date: 20160815
  Transmission Date: 20161109
  Serious: Yes (Hospitalization)
  Sender: FDA-Public Use
  Company Number: US-TEVA-682763USA

PATIENT
  Sex: Female

DRUGS (1)
  1. COPAXONE [Suspect]
     Active Substance: GLATIRAMER ACETATE
     Dosage: FORM STRENGTH  UNKNOWN

REACTIONS (5)
  - Gait disturbance [Unknown]
  - Hypokinesia [Unknown]
  - Disorientation [Unknown]
  - Cerebral disorder [Unknown]
  - Deafness [Unknown]

NARRATIVE: CASE EVENT DATE: 201605
